FAERS Safety Report 8561311-1 (Version None)
Quarter: 2012Q3

REPORT INFORMATION
  Report Type: 
  Country: None (occurrence: None)
  Receive Date: 20120802
  Receipt Date: 20120725
  Transmission Date: 20120928
  Serious: Yes (Other)
  Sender: FDA-Public Use
  Company Number: CA-ASTRAZENECA-2012SE41166

PATIENT

DRUGS (3)
  1. LASIX [Concomitant]
  2. KEFLEX [Concomitant]
  3. SYNAGIS [Suspect]
     Route: 030

REACTIONS (5)
  - PALLOR [None]
  - CYANOSIS [None]
  - HYPOTONIA [None]
  - CARDIOVASCULAR DISORDER [None]
  - IMMEDIATE POST-INJECTION REACTION [None]
